FAERS Safety Report 17398142 (Version 4)
Quarter: 2020Q3

REPORT INFORMATION
  Report Type: Spontaneous
  Country: DE (occurrence: DE)
  Receive Date: 20200210
  Receipt Date: 20200922
  Transmission Date: 20201102
  Serious: Yes (Hospitalization, Other)
  Sender: FDA-Public Use
  Company Number: DE-MYLANLABS-2020M1014378

PATIENT
  Sex: Male
  Weight: 98 kg

DRUGS (63)
  1. VALSARTAN. [Suspect]
     Active Substance: VALSARTAN
     Indication: BLOOD PRESSURE ABNORMAL
     Dosage: UNK
     Dates: start: 20180718, end: 20190424
  2. TRAMAGIT [Concomitant]
     Dosage: UNK
  3. TRAMADOL AXCOUNT [Concomitant]
     Dosage: UNK
  4. BRALTUS [Concomitant]
     Active Substance: TIOTROPIUM BROMIDE
     Dosage: UNK (10 MICROGRAM PLUS 3 ZONDA)
  5. DEXAMETHASON                       /00016001/ [Concomitant]
     Active Substance: DEXAMETHASONE
     Dosage: UNK
  6. CANNABIS [Concomitant]
     Active Substance: CANNABIS SATIVA SUBSP. INDICA TOP
     Dosage: UNK (FLOWERS)
  7. FOSTER [Concomitant]
     Active Substance: BECLOMETHASONE\FORMOTEROL
     Indication: CHRONIC OBSTRUCTIVE PULMONARY DISEASE
     Dosage: UNK
     Route: 055
  8. TRAMADOL 1 A PHARMA [Concomitant]
     Dosage: UNK (200 RET)
  9. CELECOXIB ABZ [Concomitant]
     Dosage: UNK
  10. VERMOX                             /00249602/ [Concomitant]
     Active Substance: AMOXICILLIN
     Dosage: UNK
  11. HYDROMORPHONHYDROCHLORID BETA [Concomitant]
     Dosage: UNK (2)
  12. TAMSULOSIN ABZ [Concomitant]
     Active Substance: TAMSULOSIN HYDROCHLORIDE
     Dosage: UNK
  13. VALSARTAN DURA [Concomitant]
     Active Substance: VALSARTAN
     Dosage: UNK
  14. CANDESARTAN ZENTIVA [Concomitant]
     Active Substance: CANDESARTAN CILEXETIL
     Dosage: UNK
  15. CANDESARTAN HEUMANN [Concomitant]
     Active Substance: CANDESARTAN CILEXETIL
     Dosage: UNK
  16. MIRTAZAPIN HEUMANN [Concomitant]
     Active Substance: MIRTAZAPINE
     Dosage: UNK
  17. VENLAFAXIN HEUMANN [Concomitant]
     Active Substance: VENLAFAXINE HYDROCHLORIDE
     Dosage: UNK
  18. EXFORGE [Concomitant]
     Active Substance: AMLODIPINE BESYLATE\VALSARTAN
     Dosage: UNK
  19. SRIVASSO [Concomitant]
     Active Substance: TIOTROPIUM BROMIDE ANHYDROUS
     Dosage: UNK (KAP NACHF?LL)
  20. VALSARTAN DURA [Suspect]
     Active Substance: VALSARTAN
     Dosage: 160 MILLIGRAM, QD
     Dates: start: 20181005
  21. CELEBREX [Concomitant]
     Active Substance: CELECOXIB
     Dosage: UNK
  22. TRAMADOL HYDROCHLORID/PARACETAMOL [Concomitant]
     Active Substance: ACETAMINOPHEN\TRAMADOL HYDROCHLORIDE
     Dosage: UNK (37,5 / 325)
  23. CYMBALTA [Concomitant]
     Active Substance: DULOXETINE HYDROCHLORIDE
     Dosage: UNK
  24. FLUOXETINE [Concomitant]
     Active Substance: FLUOXETINE HYDROCHLORIDE
     Dosage: UNK
  25. HYDROCUTAN                         /00028601/ [Concomitant]
     Dosage: UNK
  26. CIRCADIN [Concomitant]
     Active Substance: MELATONIN
     Dosage: UNK
  27. ETORICOXIB. [Concomitant]
     Active Substance: ETORICOXIB
     Indication: PAIN
     Dosage: UNK
     Route: 048
  28. SALBUHEXAL [Concomitant]
     Active Substance: ALBUTEROL
     Dosage: UNK (200 HUB)
  29. GABAPENTIN. [Concomitant]
     Active Substance: GABAPENTIN
     Dosage: UNK (MICRO LAB)
  30. FOSTER                             /00500401/ [Concomitant]
     Active Substance: PIROXICAM
     Dosage: UNK (10)
  31. SPIRIVA [Concomitant]
     Active Substance: TIOTROPIUM BROMIDE MONOHYDRATE
     Dosage: UNK
  32. ETORI 1 A PHARMA [Concomitant]
     Dosage: UNK
  33. CAPVAL                             /00281701/ [Concomitant]
     Dosage: UNK
  34. DICLOFENAC AL [Concomitant]
     Dosage: UNK (100)
  35. VALSARTAN DURA [Suspect]
     Active Substance: VALSARTAN
     Indication: PRODUCT USED FOR UNKNOWN INDICATION
     Dosage: 160 MILLIGRAM, QD
     Dates: start: 20180719, end: 20181119
  36. VALSARTAN. [Suspect]
     Active Substance: VALSARTAN
     Indication: BLOOD PRESSURE ABNORMAL
     Dosage: 160 MILLIGRAM
     Dates: start: 20180411
  37. TRAMADOL 1 A PHARMA [Concomitant]
     Dosage: UNK (150 RET)
  38. CELECOXIB 1A PHARMA [Concomitant]
     Dosage: UNK
  39. CELECOXIB ZENTIVA [Concomitant]
     Dosage: UNK
  40. FOSTER [Concomitant]
     Active Substance: BECLOMETHASONE\FORMOTEROL
     Dosage: UNK
  41. ETORICOXIB GLENMARK [Concomitant]
     Dosage: UNK
  42. ETORICOXIB PUREN [Concomitant]
     Dosage: UNK
  43. ETORICOXIB AL [Concomitant]
     Dosage: UNK
  44. ETORIAX [Concomitant]
     Active Substance: ETORICOXIB
     Dosage: UNK
  45. VENLAFAXIN ATID [Concomitant]
     Dosage: UNK
  46. DIPROGENTA [Concomitant]
     Active Substance: BETAMETHASONE DIPROPIONATE\GENTAMICIN SULFATE
     Dosage: UNK
  47. SPIRIVA [Concomitant]
     Active Substance: TIOTROPIUM BROMIDE MONOHYDRATE
     Indication: CHRONIC OBSTRUCTIVE PULMONARY DISEASE
     Dosage: UNK
     Route: 055
  48. PANTOPRAZOLE SODIUM. [Concomitant]
     Active Substance: PANTOPRAZOLE SODIUM
     Dosage: UNK
  49. GABAPENTIN PFIZER [Concomitant]
     Active Substance: GABAPENTIN
     Dosage: UNK
  50. PANTOPRAZOL WINTHROP [Concomitant]
     Active Substance: PANTOPRAZOLE SODIUM
     Dosage: UNK
  51. TRIMIPRAMIN?NEURAXPHARM [Concomitant]
     Active Substance: TRIMIPRAMINE MALEATE
     Dosage: UNK
  52. AMLODIPIN HEXAL                    /00972401/ [Concomitant]
     Active Substance: AMLODIPINE BESYLATE
     Dosage: UNK
  53. VALSACOR [Concomitant]
     Active Substance: VALSARTAN
     Dosage: UNK
  54. METFORMIN ATID [Concomitant]
     Active Substance: METFORMIN HYDROCHLORIDE
     Dosage: UNK
  55. HYDROMORPHONE [Concomitant]
     Active Substance: HYDROMORPHONE
     Indication: PAIN
     Dosage: UNK
     Route: 048
  56. VENLAFAXIN [Concomitant]
     Active Substance: VENLAFAXINE HYDROCHLORIDE
     Indication: PAIN
     Dosage: UNK
     Route: 048
  57. AMINEURIN [Concomitant]
     Active Substance: AMITRIPTYLINE HYDROCHLORIDE
     Indication: PAIN
     Dosage: UNK
     Route: 048
  58. METFORMIN [Concomitant]
     Active Substance: METFORMIN HYDROCHLORIDE
     Indication: DIABETES MELLITUS
     Dosage: UNK
     Route: 048
  59. IBUFLAM                            /00109201/ [Concomitant]
     Active Substance: IBUPROFEN
     Dosage: UNK
  60. NOVAMINSULFON LICHTENSTEIN [Concomitant]
     Active Substance: METAMIZOLE SODIUM
     Dosage: UNK
  61. RAMIPRIL. [Concomitant]
     Active Substance: RAMIPRIL
     Dosage: UNK
  62. GABAPENTIN ARISTO [Concomitant]
     Active Substance: GABAPENTIN
     Dosage: UNK
  63. AMITRIPTYLINE [Concomitant]
     Active Substance: AMITRIPTYLINE
     Dosage: UNK (AMITRPTYLIN DURA)

REACTIONS (5)
  - Depression [Unknown]
  - Recalled product [Unknown]
  - Mental impairment [Unknown]
  - Fear of disease [Unknown]
  - Impaired quality of life [Unknown]
